FAERS Safety Report 8296527-5 (Version None)
Quarter: 2012Q2

REPORT INFORMATION
  Report Type: 
  Country: None (occurrence: None)
  Receive Date: 20120418
  Receipt Date: 20120411
  Transmission Date: 20120825
  Serious: Yes (Other)
  Sender: FDA-Public Use
  Company Number: US-MERCK-1204USA01815

PATIENT
  Sex: Male

DRUGS (1)
  1. FOSAMAX [Suspect]
     Route: 048

REACTIONS (11)
  - TOOTH ABSCESS [None]
  - DRUG HYPERSENSITIVITY [None]
  - ACTINIC KERATOSIS [None]
  - MUSCULOSKELETAL PAIN [None]
  - SINUS HEADACHE [None]
  - BACK PAIN [None]
  - FRACTURE [None]
  - PERIODONTITIS [None]
  - ORAL PAIN [None]
  - OSTEOPOROSIS [None]
  - POST-TRAUMATIC STRESS DISORDER [None]
